FAERS Safety Report 14090797 (Version 1)
Quarter: 2017Q4

REPORT INFORMATION
  Report Type: Spontaneous
  Country: US (occurrence: US)
  Receive Date: 20171015
  Receipt Date: 20171015
  Transmission Date: 20180321
  Serious: Yes (Hospitalization)
  Sender: FDA-Public Use
  Company Number: US-BEH-2017084251

PATIENT
  Age: 73 Year
  Sex: Female
  Weight: 137.87 kg

DRUGS (31)
  1. FUROSEMIDE. [Concomitant]
     Active Substance: FUROSEMIDE
  2. GLIMEPIRIDE. [Concomitant]
     Active Substance: GLIMEPIRIDE
  3. LOSARTAN. [Concomitant]
     Active Substance: LOSARTAN
  4. VENTOLIN [Concomitant]
     Active Substance: ALBUTEROL SULFATE
  5. OMEPRAZOLE. [Concomitant]
     Active Substance: OMEPRAZOLE
  6. ATORVASTATIN [Concomitant]
     Active Substance: ATORVASTATIN
  7. HIZENTRA [Suspect]
     Active Substance: HUMAN IMMUNOGLOBULIN G
     Indication: IMMUNODEFICIENCY COMMON VARIABLE
     Dosage: 14 G, UNK
     Route: 058
     Dates: start: 20170109
  8. HIZENTRA [Suspect]
     Active Substance: HUMAN IMMUNOGLOBULIN G
     Dosage: UNK
     Route: 058
  9. FLUTICASONE FUROATE [Concomitant]
     Active Substance: FLUTICASONE FUROATE
  10. ALLOPURINOL. [Concomitant]
     Active Substance: ALLOPURINOL
  11. OXYGEN. [Concomitant]
     Active Substance: OXYGEN
  12. OXYBUTYNIN. [Concomitant]
     Active Substance: OXYBUTYNIN CHLORIDE
  13. ASPIRIN. [Concomitant]
     Active Substance: ASPIRIN
  14. LEVOTHYROXINE. [Concomitant]
     Active Substance: LEVOTHYROXINE
  15. VITAMIN B12 [Concomitant]
     Active Substance: CYANOCOBALAMIN
  16. LMX                                /00033401/ [Concomitant]
  17. OXCARBAZEPINE. [Concomitant]
     Active Substance: OXCARBAZEPINE
  18. HIZENTRA [Suspect]
     Active Substance: HUMAN IMMUNOGLOBULIN G
     Dosage: UNK
     Route: 058
  19. ACETAMINOPHEN. [Concomitant]
     Active Substance: ACETAMINOPHEN
  20. EPIPEN [Concomitant]
     Active Substance: EPINEPHRINE
  21. VENOFER [Concomitant]
     Active Substance: IRON SUCROSE
  22. LINZESS [Concomitant]
     Active Substance: LINACLOTIDE
  23. METOPROLOL SUCCINATE. [Concomitant]
     Active Substance: METOPROLOL SUCCINATE
  24. MONTELUKAST [Concomitant]
     Active Substance: MONTELUKAST SODIUM
  25. ISOSORBIDE MONONITRATE. [Concomitant]
     Active Substance: ISOSORBIDE MONONITRATE
  26. GABAPENTIN. [Concomitant]
     Active Substance: GABAPENTIN
  27. DIPHENHYDRAMINE. [Concomitant]
     Active Substance: DIPHENHYDRAMINE
  28. LANTUS [Concomitant]
     Active Substance: INSULIN GLARGINE
  29. VITAMIN D3 [Concomitant]
     Active Substance: CHOLECALCIFEROL
  30. DILTIAZEM. [Concomitant]
     Active Substance: DILTIAZEM
  31. LISINOPRIL. [Concomitant]
     Active Substance: LISINOPRIL

REACTIONS (4)
  - Cardiac pacemaker insertion [Recovered/Resolved]
  - Loss of consciousness [Recovered/Resolved]
  - Fall [Recovered/Resolved]
  - Head injury [Recovered/Resolved]

NARRATIVE: CASE EVENT DATE: 20170904
